FAERS Safety Report 4339240-9 (Version None)
Quarter: 2004Q2

REPORT INFORMATION
  Report Type: 
  Country: None (occurrence: None)
  Receive Date: 20040412
  Receipt Date: 20040331
  Transmission Date: 20050107
  Serious: Yes (Other)
  Sender: FDA-Public Use
  Company Number: US-JNJFOC-20040400716

PATIENT
  Age: 24 Year
  Sex: Female
  Weight: 69.4003 kg

DRUGS (3)
  1. ORTHO EVRA [Suspect]
     Indication: CONTRACEPTION
     Dosage: 1 DOSE(S), 3 IN 4 WEEK, TRANSDERMAL
     Route: 062
  2. ORTHO EVRA [Suspect]
  3. KLONOPIN [Concomitant]

REACTIONS (8)
  - BREAST DISCHARGE [None]
  - CONCUSSION [None]
  - DIZZINESS [None]
  - FATIGUE [None]
  - LOSS OF CONSCIOUSNESS [None]
  - MIGRAINE [None]
  - MUSCLE CRAMP [None]
  - OLIGOMENORRHOEA [None]
